FAERS Safety Report 6139639-4 (Version None)
Quarter: 2009Q2

REPORT INFORMATION
  Report Type: 
  Country: None (occurrence: None)
  Receive Date: 20090401
  Receipt Date: 20090301
  Transmission Date: 20091009
  Serious: No
  Sender: FDA-Public Use
  Company Number: US-BAYER-200910739BCC

PATIENT
  Age: 43 Year
  Sex: Female
  Weight: 64 kg

DRUGS (1)
  1. ALEVE (CAPLET) [Suspect]
     Indication: NECK PAIN
     Dosage: AS USED: 440 MG  UNIT DOSE: 220 MG
     Route: 048
     Dates: start: 20090301

REACTIONS (1)
  - ABDOMINAL PAIN [None]
